FAERS Safety Report 10725878 (Version 1)
Quarter: 2015Q1

REPORT INFORMATION
  Report Type: Spontaneous
  Country: US (occurrence: None)
  Receive Date: 20150116
  Receipt Date: 20150116
  Transmission Date: 20150721
  Serious: Yes (Hospitalization, Other)
  Sender: FDA-Public Use
  Company Number: 2015SUP00005

PATIENT
  Age: 33 Year
  Sex: Female

DRUGS (2)
  1. APTIOM [Suspect]
     Active Substance: ESLICARBAZEPINE ACETATE
     Dosage: UNK
     Route: 048
     Dates: start: 2014, end: 2014
  2. OXTELLAR XR [Suspect]
     Active Substance: OXCARBAZEPINE
     Dosage: UNK
     Dates: start: 2014

REACTIONS (4)
  - Ataxia [None]
  - Drug administration error [None]
  - Overdose [None]
  - Suicide attempt [None]

NARRATIVE: CASE EVENT DATE: 2014
